FAERS Safety Report 8594155-5 (Version None)
Quarter: 2012Q3

REPORT INFORMATION
  Report Type: 
  Country: None (occurrence: None)
  Receive Date: 20120814
  Receipt Date: 20120803
  Transmission Date: 20120928
  Serious: Yes (Hospitalization)
  Sender: FDA-Public Use
  Company Number: US-ROCHE-1075461

PATIENT
  Sex: Male
  Weight: 55.388 kg

DRUGS (4)
  1. XELODA [Suspect]
     Route: 048
     Dates: start: 20120524, end: 20120531
  2. XELODA [Suspect]
     Indication: COLON CANCER
     Route: 048
     Dates: start: 20120507, end: 20120524
  3. XELODA [Suspect]
     Route: 048
     Dates: start: 20120602, end: 20120705
  4. OXALIPLATIN [Concomitant]
     Indication: COLON CANCER
     Route: 042
     Dates: start: 20120507, end: 20120531

REACTIONS (13)
  - FATIGUE [None]
  - ABASIA [None]
  - DIARRHOEA [None]
  - BACK PAIN [None]
  - VOMITING [None]
  - NAUSEA [None]
  - GAIT DISTURBANCE [None]
  - ILL-DEFINED DISORDER [None]
  - DECREASED APPETITE [None]
  - PAIN [None]
  - AGEUSIA [None]
  - MALAISE [None]
  - MUSCULOSKELETAL PAIN [None]
